FAERS Safety Report 15395751 (Version 8)
Quarter: 2022Q2

REPORT INFORMATION
  Report Type: Other
  Country: DE (occurrence: None)
  Receive Date: 20180918
  Receipt Date: 20220524
  Transmission Date: 20220721
  Serious: Yes (Other)
  Sender: FDA-Public Use
  Company Number: DE-ROCHE-2184220

PATIENT
  Age: 47 Year
  Sex: Male
  Weight: 73 kg

DRUGS (2)
  1. OCRELIZUMAB [Suspect]
     Active Substance: OCRELIZUMAB
     Indication: Relapsing multiple sclerosis
     Route: 041
     Dates: start: 20180614, end: 20180628
  2. OCRELIZUMAB [Suspect]
     Active Substance: OCRELIZUMAB
     Route: 041
     Dates: start: 20181213

REACTIONS (3)
  - Urinary tract infection [Recovered/Resolved]
  - Hepatitis [Recovering/Resolving]
  - Urinary tract infection [Recovered/Resolved]

NARRATIVE: CASE EVENT DATE: 20180828
